APPROVED DRUG PRODUCT: UCEPHAN
Active Ingredient: SODIUM BENZOATE; SODIUM PHENYLACETATE
Strength: 100MG/ML;100MG/ML
Dosage Form/Route: SOLUTION;ORAL
Application: N019530 | Product #001
Applicant: B BRAUN MEDICAL INC
Approved: Dec 23, 1987 | RLD: No | RS: No | Type: DISCN